FAERS Safety Report 5213254-9 (Version None)
Quarter: 2006Q4

REPORT INFORMATION
  Report Type: 
  Country: None (occurrence: None)
  Receive Date: 20061107
  Receipt Date: 20060719
  Transmission Date: 20070319
  Serious: No
  Sender: FDA-Public Use
  Company Number: 200614659BWH

PATIENT
  Age: 62 Year
  Sex: Male

DRUGS (9)
  1. LEVITRA [Suspect]
     Indication: ERECTILE DYSFUNCTION
     Dosage: 20 MG, TOTAL DAILY, ORAL
     Route: 048
     Dates: start: 20050701
  2. AMERGE [Concomitant]
  3. ZYRTEC-D [Concomitant]
  4. PULMICORT [Concomitant]
  5. PRILOSEC [Concomitant]
  6. ALPRAZOLAM [Concomitant]
  7. FLONASE [Concomitant]
  8. FLOMAX [Concomitant]
  9. ENALAPRIL MALEATE [Concomitant]

REACTIONS (1)
  - ERECTILE DYSFUNCTION [None]
